FAERS Safety Report 6747680-3 (Version None)
Quarter: 2010Q2

REPORT INFORMATION
  Report Type: 
  Country: None (occurrence: None)
  Receive Date: 20100528
  Receipt Date: 20100518
  Transmission Date: 20101027
  Serious: Yes (Other)
  Sender: FDA-Public Use
  Company Number: US-ELI_LILLY_AND_COMPANY-US201005005816

PATIENT
  Sex: Female

DRUGS (3)
  1. CYMBALTA [Suspect]
     Indication: FIBROMYALGIA
     Dosage: 30 MG, UNK
  2. ACTOS [Concomitant]
  3. METFORMIN HYDROCHLORIDE [Concomitant]

REACTIONS (2)
  - ANXIETY [None]
  - HOMICIDAL IDEATION [None]
